FAERS Safety Report 21478846 (Version 1)
Quarter: 2022Q4

REPORT INFORMATION
  Report Type: Spontaneous
  Country: US (occurrence: US)
  Receive Date: 20221019
  Receipt Date: 20221019
  Transmission Date: 20230113
  Serious: No
  Sender: FDA-Public Use
  Company Number: US-CELLTRION INC.-2022US000489

PATIENT

DRUGS (1)
  1. INFLECTRA [Suspect]
     Active Substance: INFLIXIMAB-DYYB
     Indication: Product used for unknown indication
     Dosage: 361 MG AT DAY 0,2,6 THEN Q 8 WK THEREAFTER (100MG/20ML) QUANTITY: 12 REFILLS: 11
     Route: 065

REACTIONS (1)
  - Product prescribing issue [Unknown]
